FAERS Safety Report 7979833-0 (Version None)
Quarter: 2011Q4

REPORT INFORMATION
  Report Type: 
  Country: None (occurrence: None)
  Receive Date: 20111214
  Receipt Date: 20111208
  Transmission Date: 20120403
  Serious: Yes (Death, Other)
  Sender: FDA-Public Use
  Company Number: CH-ELI_LILLY_AND_COMPANY-CH201112002473

PATIENT
  Age: 69 Year
  Sex: Female

DRUGS (4)
  1. OXYCONTIN [Concomitant]
     Dosage: UNK
     Dates: end: 20110919
  2. PANTOPRAZOLE SODIUM [Concomitant]
     Dosage: 40 MG, QD
     Route: 048
     Dates: end: 20110919
  3. NEBIVOLOL HCL [Concomitant]
     Dosage: 5 MG, QD
     Route: 048
  4. GEMZAR [Suspect]
     Indication: HEPATIC NEOPLASM MALIGNANT
     Dosage: 1600 MG, UNK
     Route: 042
     Dates: start: 20110909

REACTIONS (8)
  - DYSPNOEA [None]
  - CAPILLARY LEAK SYNDROME [None]
  - HYPOTENSION [None]
  - MULTI-ORGAN FAILURE [None]
  - PNEUMOTHORAX [None]
  - RENAL FAILURE ACUTE [None]
  - SINUS TACHYCARDIA [None]
  - HEPATIC ENZYME ABNORMAL [None]
